FAERS Safety Report 6117411-9 (Version None)
Quarter: 2009Q1

REPORT INFORMATION
  Report Type: 
  Country: None (occurrence: None)
  Receive Date: 20090314
  Receipt Date: 20090119
  Transmission Date: 20090719
  Serious: No
  Sender: FDA-Public Use
  Company Number: US-ABBOTT-09P-163-0498731-00

PATIENT
  Sex: Male

DRUGS (2)
  1. HUMIRA [Suspect]
     Indication: COLITIS ULCERATIVE
     Route: 058
     Dates: start: 20090101
  2. HUMIRA [Suspect]
     Dosage: SECOND DOSE

REACTIONS (3)
  - DRUG DELIVERY SYSTEM MALFUNCTION [None]
  - INJECTION SITE IRRITATION [None]
  - INJECTION SITE PAIN [None]
